FAERS Safety Report 5600930-9 (Version None)
Quarter: 2008Q1

REPORT INFORMATION
  Report Type: 
  Country: None (occurrence: None)
  Receive Date: 20080124
  Receipt Date: 20080118
  Transmission Date: 20080703
  Serious: Yes (Hospitalization)
  Sender: FDA-Public Use
  Company Number: SE-JNJFOC-20080105064

PATIENT
  Age: 66 Year
  Sex: Female

DRUGS (13)
  1. REMICADE [Suspect]
     Route: 042
  2. REMICADE [Suspect]
     Indication: PSORIATIC ARTHROPATHY
     Route: 042
  3. ALVEDON [Concomitant]
  4. SELOKEN [Concomitant]
  5. OMEPRAZOLE [Concomitant]
  6. METHOTREXATE [Concomitant]
  7. FOLACIN [Concomitant]
  8. PROGYNON [Concomitant]
  9. GAVISCON [Concomitant]
  10. BRICANYL [Concomitant]
     Route: 055
  11. CIPRAMIL [Concomitant]
  12. RELIFEX [Concomitant]
  13. ORUDIS [Concomitant]

REACTIONS (1)
  - PNEUMONIA LEGIONELLA [None]
